FAERS Safety Report 5272697-8 (Version None)
Quarter: 2007Q1

REPORT INFORMATION
  Report Type: 
  Country: None (occurrence: None)
  Receive Date: 20070322
  Receipt Date: 20070307
  Transmission Date: 20070707
  Serious: Yes (Hospitalization)
  Sender: FDA-Public Use
  Company Number: US-AMGEN-STX214260

PATIENT
  Sex: Female

DRUGS (2)
  1. ENBREL [Suspect]
     Indication: RHEUMATOID ARTHRITIS
     Route: 058
     Dates: start: 20021031
  2. METHOTREXATE [Concomitant]
     Route: 065

REACTIONS (3)
  - FALL [None]
  - HIP FRACTURE [None]
  - HYPOTRICHOSIS [None]
